FAERS Safety Report 9196493 (Version 1)
Quarter: 2013Q1

REPORT INFORMATION
  Report Type: Spontaneous
  Country: JP (occurrence: JP)
  Receive Date: 20130328
  Receipt Date: 20130328
  Transmission Date: 20140127
  Serious: Yes (Death, Disabling)
  Sender: FDA-Public Use
  Company Number: JP-SANOFI-AVENTIS-2012SA095487

PATIENT
  Age: 66 Year
  Sex: Female
  Weight: 52.2 kg

DRUGS (28)
  1. AMARYL [Suspect]
     Indication: PRODUCT USED FOR UNKNOWN INDICATION
     Route: 048
     Dates: start: 20121222, end: 20121225
  2. CIPROXAN [Suspect]
     Indication: PRODUCT USED FOR UNKNOWN INDICATION
     Route: 042
     Dates: start: 20121225, end: 20121229
  3. ARTIST [Concomitant]
     Route: 048
     Dates: start: 20121222, end: 20121228
  4. FAMOTIDINE [Concomitant]
     Route: 048
     Dates: start: 20121222, end: 20121228
  5. ITOROL [Concomitant]
     Route: 048
     Dates: start: 20121222, end: 20121228
  6. BAYASPIRIN [Concomitant]
     Route: 048
     Dates: start: 20121222, end: 20121228
  7. ALDACTONE-A [Concomitant]
     Route: 048
     Dates: start: 20121222, end: 20121228
  8. BAKTAR [Concomitant]
     Route: 048
     Dates: start: 20121223, end: 20121226
  9. LASIX [Concomitant]
     Route: 042
     Dates: start: 20121226, end: 20121227
  10. LASIX [Concomitant]
     Route: 042
     Dates: start: 20121222, end: 20121222
  11. LASIX [Concomitant]
     Route: 042
     Dates: start: 20121223, end: 20121225
  12. LASIX [Concomitant]
     Route: 048
     Dates: start: 20121222, end: 20121228
  13. HEPARIN SODIUM [Concomitant]
     Dosage: DOSE:400 UNIT(S)
     Route: 042
     Dates: start: 20121222, end: 20121229
  14. NITOROL [Concomitant]
     Route: 042
     Dates: start: 20121226, end: 20121228
  15. NITOROL [Concomitant]
     Route: 042
     Dates: start: 20121222, end: 20121225
  16. SERENACE [Concomitant]
     Route: 042
     Dates: start: 20121224, end: 20121229
  17. SERENACE [Concomitant]
     Route: 042
     Dates: start: 20121222, end: 20121222
  18. SERENACE [Concomitant]
     Route: 042
     Dates: start: 20121223, end: 20121223
  19. AKINETON [Concomitant]
     Route: 042
     Dates: start: 20121224, end: 20121229
  20. AKINETON [Concomitant]
     Route: 042
     Dates: start: 20121222, end: 20121222
  21. AKINETON [Concomitant]
     Route: 042
     Dates: start: 20121223, end: 20121223
  22. AKINETON [Concomitant]
     Route: 048
     Dates: start: 20121222, end: 20121228
  23. HIRNAMIN [Concomitant]
     Route: 030
     Dates: start: 20121224, end: 20121228
  24. HIRNAMIN [Concomitant]
     Route: 030
     Dates: start: 20121222, end: 20121222
  25. CEFTRIAXONE [Concomitant]
     Route: 042
     Dates: start: 20121223, end: 20121225
  26. MEROPENEM [Concomitant]
     Route: 042
     Dates: start: 20121226, end: 20121229
  27. MEROPENEM [Concomitant]
     Route: 042
     Dates: start: 20121225, end: 20121225
  28. ISODINE [Concomitant]
     Dates: start: 20121223

REACTIONS (1)
  - Hypoglycaemia [Fatal]
